FAERS Safety Report 10337801 (Version 2)
Quarter: 2014Q3

REPORT INFORMATION
  Report Type: Spontaneous
  Country: US (occurrence: US)
  Receive Date: 20140724
  Receipt Date: 20140724
  Transmission Date: 20150326
  Serious: No
  Sender: FDA-Public Use
  Company Number: US-UNITED THERAPEUTICS-UTC-045850

PATIENT
  Sex: Female
  Weight: 50.98 kg

DRUGS (4)
  1. COUMADIN [Concomitant]
     Active Substance: WARFARIN SODIUM
  2. TYVASO [Suspect]
     Active Substance: TREPROSTINIL
     Dosage: 18-54 MICROGRAMS
     Dates: start: 20140416
  3. REMODULIN [Suspect]
     Active Substance: TREPROSTINIL
     Dosage: 0.03 UG/KG/MIN
     Route: 041
     Dates: start: 20140114
  4. CIALIS [Concomitant]
     Active Substance: TADALAFIL

REACTIONS (7)
  - Diarrhoea [Unknown]
  - Pain in extremity [Unknown]
  - Injection site pruritus [Unknown]
  - Dermatitis allergic [Unknown]
  - Injection site pain [Unknown]
  - Dizziness [Unknown]
  - Oedema peripheral [Unknown]

NARRATIVE: CASE EVENT DATE: 2014
